FAERS Safety Report 9319714 (Version 1)
Quarter: 2013Q2

REPORT INFORMATION
  Report Type: Report from Study
  Country: PH (occurrence: PH)
  Receive Date: 20130530
  Receipt Date: 20130530
  Transmission Date: 20140414
  Serious: Yes (Hospitalization)
  Sender: FDA-Public Use
  Company Number: PH-GLAXOSMITHKLINE-A0688571D

PATIENT
  Age: 48 Year
  Sex: Male
  Weight: 67.5 kg

DRUGS (3)
  1. LAPATINIB [Suspect]
     Indication: SQUAMOUS CELL CARCINOMA OF HEAD AND NECK
     Dosage: 1500MG PER DAY
     Route: 048
     Dates: start: 20070926, end: 20080902
  2. CISPLATIN [Suspect]
     Indication: SQUAMOUS CELL CARCINOMA OF HEAD AND NECK
     Dosage: 62.5MGM2 CYCLIC
     Route: 042
     Dates: start: 20071001
  3. RADIOTHERAPY [Concomitant]
     Indication: SQUAMOUS CELL CARCINOMA OF HEAD AND NECK
     Route: 061
     Dates: start: 20071015

REACTIONS (1)
  - Pharyngeal fistula [Recovered/Resolved]
